FAERS Safety Report 4839937-8 (Version None)
Quarter: 2005Q4

REPORT INFORMATION
  Report Type: 
  Country: None (occurrence: None)
  Receive Date: 20051125
  Receipt Date: 20051110
  Transmission Date: 20060501
  Serious: Yes (Hospitalization)
  Sender: FDA-Public Use
  Company Number: 8013379

PATIENT
  Age: 45 Year
  Sex: Female
  Weight: 86 kg

DRUGS (8)
  1. KEPPRA [Suspect]
     Dosage: 500 MG 2/D PO
     Route: 048
     Dates: start: 20051007
  2. EPITOMAX [Suspect]
     Dosage: 15 MG /D PO
     Route: 048
     Dates: start: 20051013, end: 20051016
  3. TEGRETOL [Suspect]
     Indication: MYOCLONUS
     Dosage: 200 MG 2/D PO
     Route: 048
     Dates: start: 20050922, end: 20051011
  4. TEGRETOL [Suspect]
     Indication: MYOCLONUS
     Dosage: 200 MG ONCE PO
     Route: 048
     Dates: start: 20051012, end: 20051012
  5. LEVOTHYROX [Concomitant]
  6. TARDYFERON [Concomitant]
  7. RIVOTRIL [Concomitant]
  8. EFFERALGAN [Concomitant]

REACTIONS (7)
  - ASTHENIA [None]
  - DRUG HYPERSENSITIVITY [None]
  - HEADACHE [None]
  - HYPOTHERMIA [None]
  - LEUKOPENIA [None]
  - RASH MACULO-PAPULAR [None]
  - THROMBOCYTOPENIC PURPURA [None]
